FAERS Safety Report 8929605 (Version 1)
Quarter: 2012Q4

REPORT INFORMATION
  Report Type: 
  Country: US (occurrence: US)
  Receive Date: 20121121
  Receipt Date: 20121121
  Transmission Date: 20130627
  Serious: Yes (Death, Disabling)
  Sender: FDA-Public Use
  Company Number: US-ASTELLAS-1094315

PATIENT

DRUGS (4)
  1. TARCEVA [Suspect]
     Indication: BRAIN NEOPLASM MALIGNANT
  2. TARCEVA [Suspect]
     Indication: BRAIN NEOPLASM MALIGNANT
  3. XELODA [Suspect]
     Indication: BRAIN NEOPLASM MALIGNANT
  4. XELODA [Suspect]
     Indication: BRAIN NEOPLASM MALIGNANT

REACTIONS (2)
  - Death [Fatal]
  - Ill-defined disorder [Unknown]
